FAERS Safety Report 10143855 (Version 1)
Quarter: 2014Q2

REPORT INFORMATION
  Report Type: Spontaneous
  Country: US (occurrence: US)
  Receive Date: 20140430
  Receipt Date: 20140430
  Transmission Date: 20141212
  Serious: Yes (Hospitalization)
  Sender: FDA-Public Use
  Company Number: US-INCYTE CORPORATION-2014IN001143

PATIENT
  Age: 85 Year
  Sex: Female

DRUGS (8)
  1. JAKAFI [Suspect]
     Indication: MYELOFIBROSIS
     Dosage: 5 MG IN AM AND 10 MG IN PM
     Route: 048
     Dates: start: 20140119, end: 20140403
  2. TEMAZEPAM [Concomitant]
  3. LORAZEPAM [Concomitant]
  4. OXYCODONE [Concomitant]
  5. AMLODIPINE [Concomitant]
  6. LEVOTHYROXINE [Concomitant]
  7. FOLIC ACID [Concomitant]
  8. FENTANYL [Concomitant]

REACTIONS (1)
  - Hospitalisation [Unknown]
